FAERS Safety Report 9423173 (Version 2)
Quarter: 2013Q4

REPORT INFORMATION
  Report Type: Report from Study
  Country: US (occurrence: US)
  Receive Date: 20130726
  Receipt Date: 20131211
  Transmission Date: 20140711
  Serious: Yes (Hospitalization)
  Sender: FDA-Public Use
  Company Number: PHEH2013US015720

PATIENT
  Age: 8 Year
  Sex: Male

DRUGS (6)
  1. AFINITOR [Suspect]
     Indication: ANGIOMYOLIPOMA
     Dosage: 10 MG, QD
     Route: 048
     Dates: start: 20120404, end: 20130719
  2. AFINITOR [Suspect]
     Dosage: 10 MG, UNK
     Route: 048
     Dates: start: 20121129
  3. CELEXA [Concomitant]
  4. TEGRETOL [Concomitant]
  5. LEXAPRO [Concomitant]
  6. ABILIFY [Concomitant]

REACTIONS (10)
  - Pallor [Unknown]
  - Lymphadenopathy [Unknown]
  - Dizziness [Unknown]
  - Blood sodium decreased [Unknown]
  - Headache [Unknown]
  - Pyrexia [Unknown]
  - Sinusitis [Unknown]
  - Mycoplasma infection [Unknown]
  - Night sweats [Unknown]
  - Blood testosterone decreased [Unknown]
